FAERS Safety Report 4852818-9 (Version None)
Quarter: 2005Q4

REPORT INFORMATION
  Report Type: 
  Country: None (occurrence: None)
  Receive Date: 20051212
  Receipt Date: 20051212
  Transmission Date: 20060501
  Serious: Yes (Hospitalization)
  Sender: FDA-Public Use
  Company Number: None

PATIENT
  Age: 52 Year
  Sex: Female
  Weight: 78.2 kg

DRUGS (2)
  1. NAVELBINE [Suspect]
     Indication: NON-SMALL CELL LUNG CANCER
     Dosage: 45MG  Q2WKS IV
     Route: 042
     Dates: start: 20051104, end: 20051125
  2. DOCETAXEL [Suspect]
     Indication: NON-SMALL CELL LUNG CANCER
     Dosage: 60MG  Q2WKS IV DRIP
     Route: 041
     Dates: start: 20051104, end: 20051125

REACTIONS (1)
  - CELLULITIS [None]
